FAERS Safety Report 5064276-2 (Version None)
Quarter: 2006Q3

REPORT INFORMATION
  Report Type: 
  Country: None (occurrence: None)
  Receive Date: 20060726
  Receipt Date: 20060726
  Transmission Date: 20061208
  Serious: Yes (Hospitalization, Disabling)
  Sender: FDA-Public Use
  Company Number: None

PATIENT
  Age: 75 Year
  Sex: Male
  Weight: 71.8 kg

DRUGS (2)
  1. CIDOFOVIR [Suspect]
     Indication: CYTOMEGALOVIRUS INFECTION
     Dosage: 225 MG -3MG/KG- ONE TIME INJ
     Dates: start: 20060720, end: 20060720
  2. CIDOFOVIR [Suspect]
     Indication: DRUG RESISTANCE
     Dosage: 225 MG -3MG/KG- ONE TIME INJ
     Dates: start: 20060720, end: 20060720

REACTIONS (9)
  - ASTHENIA [None]
  - BODY TEMPERATURE INCREASED [None]
  - DIZZINESS [None]
  - GAIT DISTURBANCE [None]
  - HEADACHE [None]
  - MENTAL STATUS CHANGES [None]
  - SPEECH DISORDER [None]
  - URINARY INCONTINENCE [None]
  - VISUAL DISTURBANCE [None]
